FAERS Safety Report 20877736 (Version 1)
Quarter: 2022Q2

REPORT INFORMATION
  Report Type: Spontaneous
  Country: US (occurrence: US)
  Receive Date: 20220526
  Receipt Date: 20220526
  Transmission Date: 20220721
  Serious: Yes (Death, Other)
  Sender: FDA-Public Use
  Company Number: US-PFIZER INC-202200709196

PATIENT
  Age: 70 Year
  Sex: Male

DRUGS (4)
  1. VANCOMYCIN HYDROCHLORIDE [Suspect]
     Active Substance: VANCOMYCIN HYDROCHLORIDE
     Indication: Cellulitis
     Dosage: 750 MG, DAILY
     Route: 042
  2. CEFEPIME HYDROCHLORIDE [Suspect]
     Active Substance: CEFEPIME HYDROCHLORIDE
     Indication: Cellulitis
     Dosage: 1 G, DAILY
  3. VORICONAZOLE [Concomitant]
     Active Substance: VORICONAZOLE
     Dosage: 4 MG/KG, 2X/DAY
     Route: 042
  4. AMPHOTERICIN B [Concomitant]
     Active Substance: AMPHOTERICIN B
     Indication: Cellulitis
     Dosage: 5 MG/KG, DAILY
     Route: 042

REACTIONS (1)
  - Therapeutic product effect incomplete [Fatal]
